FAERS Safety Report 5172286-X (Version None)
Quarter: 2006Q4

REPORT INFORMATION
  Report Type: 
  Country: None (occurrence: None)
  Receive Date: 20061205
  Receipt Date: 20061023
  Transmission Date: 20070319
  Serious: Yes (Hospitalization, Other)
  Sender: FDA-Public Use
  Company Number: 2006114900

PATIENT
  Age: 77 Year
  Sex: Male
  Weight: 86.1834 kg

DRUGS (1)
  1. BEXTRA [Suspect]
     Indication: ARTHRITIS
     Dosage: 20 MG (20 MG, 1 IN 1 D)
     Dates: start: 20030719

REACTIONS (3)
  - CARDIOVASCULAR DISORDER [None]
  - CEREBROVASCULAR ACCIDENT [None]
  - INJURY [None]
